FAERS Safety Report 5370462-4 (Version None)
Quarter: 2007Q2

REPORT INFORMATION
  Report Type: 
  Country: None (occurrence: None)
  Receive Date: 20070626
  Receipt Date: 20070321
  Transmission Date: 20071010
  Serious: No
  Sender: FDA-Public Use
  Company Number: US-AMGEN-KDL216218

PATIENT
  Sex: Female
  Weight: 68.1 kg

DRUGS (6)
  1. PROCRIT [Suspect]
     Indication: ANAEMIA
     Route: 058
     Dates: start: 20040101, end: 20060601
  2. ARANESP [Suspect]
  3. TOPROL-XL [Concomitant]
     Dates: start: 19970101
  4. SYNTHROID [Concomitant]
     Dates: start: 20070301
  5. PLAVIX [Concomitant]
     Dates: start: 19970101
  6. VITAMINS NOS [Concomitant]

REACTIONS (2)
  - HYPOAESTHESIA [None]
  - PALPITATIONS [None]
